FAERS Safety Report 10034519 (Version 6)
Quarter: 2014Q3

REPORT INFORMATION
  Report Type: Spontaneous
  Country: US (occurrence: None)
  Receive Date: 20140321
  Receipt Date: 20140926
  Transmission Date: 20150326
  Serious: Yes (Hospitalization, Other)
  Sender: FDA-Public Use
  Company Number: ADR-2014-00430

PATIENT
  Age: 40 Year
  Sex: Female

DRUGS (1)
  1. LIORESAL [Suspect]
     Active Substance: BACLOFEN
     Indication: MUSCLE SPASTICITY
     Dosage: 49.98 MCG/DAY (SEE B5)

REACTIONS (11)
  - Wound infection staphylococcal [None]
  - Wound dehiscence [None]
  - Corynebacterium test positive [None]
  - Streptococcus test positive [None]
  - Micrococcus test positive [None]
  - Cerebrospinal fluid leakage [None]
  - Seroma [None]
  - Diphtheria [None]
  - Device inversion [None]
  - Post procedural infection [None]
  - Incision site infection [None]
